FAERS Safety Report 6439003-4 (Version None)
Quarter: 2009Q4

REPORT INFORMATION
  Report Type: 
  Country: None (occurrence: None)
  Receive Date: 20091113
  Receipt Date: 20091102
  Transmission Date: 20100525
  Serious: Yes (Other)
  Sender: FDA-Public Use
  Company Number: RU-ROCHE-666661

PATIENT
  Age: 31 Year
  Sex: Male

DRUGS (5)
  1. PEGASYS [Suspect]
     Indication: DRUG USE FOR UNKNOWN INDICATION
     Route: 058
  2. RIBAVIRIN [Concomitant]
  3. CEFAZOLIN [Concomitant]
  4. KETONAL [Concomitant]
  5. METRONIDAZOLE [Concomitant]

REACTIONS (2)
  - APPENDICITIS [None]
  - PELVIC ABSCESS [None]
